FAERS Safety Report 20140213 (Version 1)
Quarter: 2021Q4

REPORT INFORMATION
  Report Type: Spontaneous
  Country: US (occurrence: US)
  Receive Date: 20211202
  Receipt Date: 20211202
  Transmission Date: 20220303
  Serious: Yes (Other)
  Sender: FDA-Public Use
  Company Number: US-OTSUKA-2021_039219

PATIENT
  Age: 28 Year
  Sex: Male

DRUGS (1)
  1. ABILIFY MYCITE [Suspect]
     Active Substance: ARIPIPRAZOLE
     Indication: Product used for unknown indication
     Dosage: UNK
     Route: 065

REACTIONS (3)
  - Self-medication [Unknown]
  - Tic [Unknown]
  - Refusal of treatment by relative [Unknown]
